FAERS Safety Report 7558556-6 (Version None)
Quarter: 2011Q2

REPORT INFORMATION
  Report Type: 
  Country: None (occurrence: None)
  Receive Date: 20110621
  Receipt Date: 20110615
  Transmission Date: 20111010
  Serious: Yes (Other)
  Sender: FDA-Public Use
  Company Number: FR-BIOGENIDEC-2009BI017976

PATIENT
  Age: 26 Year
  Sex: Female

DRUGS (3)
  1. ESTROPROGESTATIVE NOS [Concomitant]
     Indication: CONTRACEPTION
  2. TYSABRI [Suspect]
     Indication: MULTIPLE SCLEROSIS
     Route: 042
     Dates: start: 20080910, end: 20090527
  3. TYSABRI [Suspect]
     Route: 042
     Dates: start: 20090101

REACTIONS (1)
  - ABORTION SPONTANEOUS [None]
